FAERS Safety Report 18083941 (Version 2)
Quarter: 2020Q3

REPORT INFORMATION
  Report Type: Spontaneous
  Country: US (occurrence: US)
  Receive Date: 20200729
  Receipt Date: 20200730
  Transmission Date: 20201103
  Serious: Yes (Hospitalization, Other)
  Sender: FDA-Public Use
  Company Number: US-CIPLA LTD.-2020US05090

PATIENT

DRUGS (1)
  1. TESTOSTERONE. [Suspect]
     Active Substance: TESTOSTERONE
     Indication: PHYSICAL FITNESS TRAINING
     Dosage: UNK
     Route: 030

REACTIONS (8)
  - Myocardial infarction [Unknown]
  - Drug abuse [Unknown]
  - Blood testosterone increased [Unknown]
  - Renal embolism [Unknown]
  - Coronary artery occlusion [Unknown]
  - Renal infarct [Unknown]
  - Coronary artery thrombosis [Unknown]
  - Renal artery thrombosis [Unknown]
